FAERS Safety Report 26071931 (Version 1)
Quarter: 2025Q4

REPORT INFORMATION
  Report Type: Spontaneous
  Country: US (occurrence: US)
  Receive Date: 20251120
  Receipt Date: 20251120
  Transmission Date: 20260118
  Serious: No
  Sender: PFIZER
  Company Number: US-PFIZER INC-202500225006

PATIENT
  Sex: Female

DRUGS (12)
  1. PALBOCICLIB [Suspect]
     Active Substance: PALBOCICLIB
     Indication: Breast cancer female
     Dosage: UNK
  2. PALBOCICLIB [Suspect]
     Active Substance: PALBOCICLIB
     Indication: Gene mutation
  3. PALBOCICLIB [Suspect]
     Active Substance: PALBOCICLIB
     Indication: Drug resistance
  4. PALBOCICLIB [Suspect]
     Active Substance: PALBOCICLIB
     Indication: Metastases to chest wall
  5. INAVOLISIB [Suspect]
     Active Substance: INAVOLISIB
     Indication: Breast cancer female
     Dosage: UNK
  6. INAVOLISIB [Suspect]
     Active Substance: INAVOLISIB
     Indication: Gene mutation
  7. INAVOLISIB [Suspect]
     Active Substance: INAVOLISIB
     Indication: Drug resistance
  8. INAVOLISIB [Suspect]
     Active Substance: INAVOLISIB
     Indication: Metastases to chest wall
  9. FULVESTRANT [Suspect]
     Active Substance: FULVESTRANT
     Indication: Breast cancer female
     Dosage: UNK
  10. FULVESTRANT [Suspect]
     Active Substance: FULVESTRANT
     Indication: Gene mutation
  11. FULVESTRANT [Suspect]
     Active Substance: FULVESTRANT
     Indication: Drug resistance
  12. FULVESTRANT [Suspect]
     Active Substance: FULVESTRANT
     Indication: Metastases to chest wall

REACTIONS (1)
  - Hyperglycaemia [Unknown]
